FAERS Safety Report 7113654-6 (Version None)
Quarter: 2010Q4

REPORT INFORMATION
  Report Type: 
  Country: None (occurrence: None)
  Receive Date: 20101119
  Receipt Date: 20101108
  Transmission Date: 20110411
  Serious: Yes (Hospitalization)
  Sender: FDA-Public Use
  Company Number: DE-WATSON-2010-14804

PATIENT
  Age: 33 Year
  Sex: Male

DRUGS (1)
  1. MONODOX [Suspect]
     Indication: BRONCHITIS BACTERIAL
     Dosage: 100 MG, DAILY

REACTIONS (3)
  - ACUTE HEPATIC FAILURE [None]
  - HEPATITIS [None]
  - RENAL FAILURE [None]
